FAERS Safety Report 9571519 (Version 1)
Quarter: 2013Q4

REPORT INFORMATION
  Report Type: Spontaneous
  Country: US (occurrence: US)
  Receive Date: 20131001
  Receipt Date: 20131001
  Transmission Date: 20140711
  Serious: No
  Sender: FDA-Public Use
  Company Number: US-PFIZER INC-2013278429

PATIENT
  Age: 75 Year
  Sex: Female
  Weight: 45.35 kg

DRUGS (3)
  1. ZYVOX [Suspect]
     Indication: MYCOBACTERIUM AVIUM COMPLEX INFECTION
     Dosage: 600 MG, 2X/DAY
     Route: 048
     Dates: start: 2013, end: 2013
  2. ZYVOX [Suspect]
     Indication: LUNG INFECTION
  3. VFEND [Suspect]
     Indication: ASPERGILLUS INFECTION
     Dosage: 200 MG, 2X/DAY
     Route: 048
     Dates: start: 201309, end: 201309

REACTIONS (5)
  - Visual impairment [Recovering/Resolving]
  - Eye colour change [Recovering/Resolving]
  - Haemoglobin decreased [Unknown]
  - Platelet count decreased [Unknown]
  - Blood disorder [Unknown]
